FAERS Safety Report 20324084 (Version 1)
Quarter: 2022Q1

REPORT INFORMATION
  Report Type: Spontaneous
  Country: US (occurrence: US)
  Receive Date: 20220111
  Receipt Date: 20220111
  Transmission Date: 20220423
  Serious: Yes (Hospitalization)
  Sender: FDA-Public Use
  Company Number: US-PFIZER INC-2020410232

PATIENT
  Age: 40 Year
  Sex: Male

DRUGS (1)
  1. VFEND [Suspect]
     Active Substance: VORICONAZOLE
     Dosage: UNK UNK, 2X/DAY (TAKE 1.5-200 MG TABS AT 9AM AND 1-200MG TAB AT 9PM)

REACTIONS (2)
  - COVID-19 [Unknown]
  - Off label use [Unknown]
